FAERS Safety Report 6123145-7 (Version None)
Quarter: 2009Q1

REPORT INFORMATION
  Report Type: 
  Country: None (occurrence: None)
  Receive Date: 20090318
  Receipt Date: 20090305
  Transmission Date: 20090719
  Serious: Yes (Other)
  Sender: FDA-Public Use
  Company Number: US-PFIZER INC-2009180350

PATIENT
  Sex: Male
  Weight: 84.807 kg

DRUGS (7)
  1. TIKOSYN [Suspect]
     Indication: ATROPHY
     Dosage: 500 UG, 2X/DAY
  2. COUMADIN [Concomitant]
     Dosage: UNK
  3. BENICAR [Concomitant]
     Dosage: UNK
  4. AMLODIPINE [Concomitant]
     Dosage: UNK
  5. SIMVASTATIN [Concomitant]
     Dosage: UNK
  6. POTASSIUM CHLORIDE [Concomitant]
     Dosage: 10 MG, 1X/DAY
  7. ALPHA LIPOIC ACID [Concomitant]
     Dosage: UNK

REACTIONS (1)
  - PULMONARY OEDEMA [None]
